FAERS Safety Report 15246099 (Version 1)
Quarter: 2018Q4

REPORT INFORMATION
  Report Type: Spontaneous
  Country: US (occurrence: US)
  Receive Date: 20180806
  Receipt Date: 20180806
  Transmission Date: 20190204
  Serious: No
  Sender: FDA-Public Use
  Company Number: US-ANIPHARMA-2018-US-013124

PATIENT
  Sex: Female

DRUGS (1)
  1. EZETIMIBE AND SIMVASTATIN TABLETS (NON-SPECIFIC) [Suspect]
     Active Substance: EZETIMIBE\SIMVASTATIN
     Route: 048

REACTIONS (1)
  - Heart rate decreased [Unknown]
